FAERS Safety Report 11848793 (Version 1)
Quarter: 2015Q4

REPORT INFORMATION
  Report Type: Spontaneous
  Country: US (occurrence: US)
  Receive Date: 20151218
  Receipt Date: 20151218
  Transmission Date: 20160305
  Serious: Yes (Hospitalization)
  Sender: FDA-Public Use
  Company Number: US-BEH-2015056802

PATIENT
  Sex: Female
  Weight: 54 kg

DRUGS (25)
  1. HIZENTRA [Suspect]
     Active Substance: HUMAN IMMUNOGLOBULIN G
     Indication: IMMUNODEFICIENCY
     Route: 058
     Dates: start: 20150703
  2. DIGESTIVE ENZYME [Concomitant]
     Active Substance: UNSPECIFIED INGREDIENT
  3. DIPHENHYDRAMINE. [Concomitant]
     Active Substance: DIPHENHYDRAMINE
  4. NASONEX [Concomitant]
     Active Substance: MOMETASONE FUROATE
  5. LEVOCETIRIZINE [Concomitant]
     Active Substance: LEVOCETIRIZINE
  6. VITAMIN C [Concomitant]
     Active Substance: ASCORBIC ACID
  7. BACTRIM [Concomitant]
     Active Substance: SULFAMETHOXAZOLE\TRIMETHOPRIM
  8. PRIMROSE OIL [Concomitant]
  9. PREDNISONE. [Concomitant]
     Active Substance: PREDNISONE
  10. LIDOCAINE/PRILOCAINE [Concomitant]
  11. LOCID [Concomitant]
  12. EPIPEN [Concomitant]
     Active Substance: EPINEPHRINE
  13. IPRATROPIUM [Concomitant]
     Active Substance: IPRATROPIUM
  14. ALBUTEROL. [Concomitant]
     Active Substance: ALBUTEROL
  15. POTASSIUM [Concomitant]
     Active Substance: POTASSIUM
  16. ACETAMINOPHEN. [Concomitant]
     Active Substance: ACETAMINOPHEN
  17. LMX [Concomitant]
     Active Substance: LIDOCAINE
  18. PROTONIX [Concomitant]
     Active Substance: PANTOPRAZOLE SODIUM
  19. LASIX [Concomitant]
     Active Substance: FUROSEMIDE
  20. SYMBICORT [Concomitant]
     Active Substance: BUDESONIDE\FORMOTEROL FUMARATE DIHYDRATE
  21. PULMICORT TURBUHALER [Concomitant]
     Active Substance: BUDESONIDE
  22. BIOFLAVONOIDS [Concomitant]
     Active Substance: BIOFLAVONOIDS
  23. CARAFATE [Concomitant]
     Active Substance: SUCRALFATE
  24. SINGULAIR [Concomitant]
     Active Substance: MONTELUKAST SODIUM
  25. RECLIPSEN [Concomitant]
     Active Substance: DESOGESTREL\ETHINYL ESTRADIOL

REACTIONS (1)
  - Respiratory disorder [Unknown]
